FAERS Safety Report 7959923-9 (Version None)
Quarter: 2011Q4

REPORT INFORMATION
  Report Type: 
  Country: None (occurrence: None)
  Receive Date: 20111206
  Receipt Date: 20111130
  Transmission Date: 20120403
  Serious: Yes (Disabling)
  Sender: FDA-Public Use
  Company Number: US-MERCK-1104USA02985

PATIENT
  Age: 42 Year
  Sex: Male

DRUGS (1)
  1. PROPECIA [Suspect]
     Indication: ANDROGENETIC ALOPECIA
     Route: 048
     Dates: start: 20090106, end: 20090301

REACTIONS (9)
  - ATTENTION DEFICIT/HYPERACTIVITY DISORDER [None]
  - INJURY [None]
  - LIGAMENT SPRAIN [None]
  - BRONCHITIS [None]
  - ERECTILE DYSFUNCTION [None]
  - ANXIETY [None]
  - HYPOGONADISM [None]
  - EMOTIONAL DISTRESS [None]
  - LIBIDO DECREASED [None]
